FAERS Safety Report 25260276 (Version 1)
Quarter: 2025Q2

REPORT INFORMATION
  Report Type: Spontaneous
  Country: US (occurrence: None)
  Receive Date: 20250501
  Receipt Date: 20250501
  Transmission Date: 20250717
  Serious: Yes (Hospitalization)
  Sender: FDA-CTU
  Company Number: None

PATIENT
  Age: 87 Year
  Sex: Male
  Weight: 64 kg

DRUGS (1)
  1. CHLORTHALIDONE [Suspect]
     Active Substance: CHLORTHALIDONE
     Dosage: FREQUENCY : DAILY;?
     Route: 048
     Dates: start: 20241106, end: 20241211

REACTIONS (7)
  - Adverse drug reaction [None]
  - Hyponatraemia [None]
  - Hyperkalaemia [None]
  - Blood pressure fluctuation [None]
  - Sedation [None]
  - Asthenia [None]
  - Decreased appetite [None]

NARRATIVE: CASE EVENT DATE: 20241211
